FAERS Safety Report 11050013 (Version 1)
Quarter: 2015Q2

REPORT INFORMATION
  Report Type: Spontaneous
  Country: IN (occurrence: IN)
  Receive Date: 20150420
  Receipt Date: 20150420
  Transmission Date: 20150821
  Serious: Yes (Death, Other)
  Sender: FDA-Public Use
  Company Number: IN-MERCK-1504IND017932

PATIENT
  Sex: Female
  Weight: 59 kg

DRUGS (1)
  1. JANUVIA [Suspect]
     Active Substance: SITAGLIPTIN PHOSPHATE
     Indication: DIABETES MELLITUS
     Dosage: STRENGTH 100 (UNIT NOT SPECIFIED), OD (ONCE DAILY)
     Route: 048

REACTIONS (1)
  - Cerebrovascular accident [Fatal]
